FAERS Safety Report 23848106 (Version 1)
Quarter: 2024Q2

REPORT INFORMATION
  Report Type: Spontaneous
  Country: CN (occurrence: CN)
  Receive Date: 20240513
  Receipt Date: 20240513
  Transmission Date: 20240716
  Serious: Yes (Hospitalization)
  Sender: FDA-Public Use
  Company Number: CN-SANDOZ-SDZ2024CN046956

PATIENT
  Sex: Male
  Weight: 75 kg

DRUGS (1)
  1. VORICONAZOLE [Suspect]
     Active Substance: VORICONAZOLE
     Indication: Bronchopulmonary aspergillosis
     Dosage: 200 MG, BID
     Route: 048
     Dates: start: 20240414, end: 20240425

REACTIONS (3)
  - Myocardial necrosis marker increased [Recovering/Resolving]
  - Liver injury [Recovered/Resolved]
  - Blood creatinine increased [Recovering/Resolving]
